FAERS Safety Report 10530080 (Version 1)
Quarter: 2014Q4

REPORT INFORMATION
  Report Type: Spontaneous
  Country: DE (occurrence: None)
  Receive Date: 20141017
  Receipt Date: 20141017
  Transmission Date: 20150528
  Serious: Yes (Congenital Anomaly, Other)
  Sender: FDA-Public Use
  Company Number: DE2013000006

PATIENT
  Sex: Male
  Weight: 3.79 kg

DRUGS (9)
  1. SEROQUEL [Concomitant]
     Active Substance: QUETIAPINE FUMARATE
  2. ZYPREXA [Suspect]
     Active Substance: OLANZAPINE
     Indication: ANXIETY DISORDER
     Route: 064
     Dates: start: 20140124, end: 20140315
  3. RISPERIDAL (RISPERIDONE) [Concomitant]
  4. DIAZEPAM. [Concomitant]
     Active Substance: DIAZEPAM
  5. PAROXETIN [Suspect]
     Active Substance: PAROXETINE HYDROCHLORIDE
     Indication: ANXIETY DISORDER
     Route: 064
     Dates: start: 20130604, end: 20131118
  6. FOLIO (FOLIC ACID + IODINE) [Concomitant]
  7. CITALOPRAM [Concomitant]
     Active Substance: CITALOPRAM HYDROBROMIDE
  8. AMITRIPTYLIN (AMITRIPTYLINE) [Concomitant]
  9. TREVILOR RETARD [Suspect]
     Active Substance: VENLAFAXINE HYDROCHLORIDE
     Indication: ANXIETY DISORDER
     Route: 064
     Dates: start: 20140124, end: 20140315

REACTIONS (7)
  - Haemangioma congenital [None]
  - Agitation neonatal [None]
  - Restlessness [None]
  - Drug withdrawal syndrome neonatal [None]
  - Congenital anomaly [None]
  - Oxygen saturation abnormal [None]
  - Maternal drugs affecting foetus [None]
